FAERS Safety Report 8003895-8 (Version None)
Quarter: 2011Q4

REPORT INFORMATION
  Report Type: 
  Country: None (occurrence: None)
  Receive Date: 20111222
  Receipt Date: 20111221
  Transmission Date: 20120403
  Serious: Yes (Hospitalization)
  Sender: FDA-Public Use
  Company Number: CH-AMGEN-CHESP2011062918

PATIENT
  Age: 77 Year
  Sex: Female
  Weight: 79 kg

DRUGS (6)
  1. FELODIPINE [Concomitant]
     Indication: HYPERTENSION
  2. PROLIA [Suspect]
     Indication: OSTEOPOROSIS
     Dosage: 60 MG, UNK
     Route: 058
     Dates: start: 20110401
  3. MAGNESIUM DIASPORAL [Concomitant]
     Indication: MUSCLE SPASMS
  4. TIATRAL [Concomitant]
  5. CALCIUM D3 [Concomitant]
     Indication: OSTEOPOROSIS
  6. BILOL COMP [Concomitant]
     Indication: HYPERTENSION

REACTIONS (3)
  - PERICARDITIS [None]
  - CEREBRAL INFARCTION [None]
  - MYOCARDITIS [None]
